FAERS Safety Report 11072423 (Version 1)
Quarter: 2015Q2

REPORT INFORMATION
  Report Type: Spontaneous
  Country: US (occurrence: None)
  Receive Date: 20150427
  Receipt Date: 20150427
  Transmission Date: 20150821
  Serious: No
  Sender: FDA-Public Use
  Company Number: None

PATIENT
  Age: 20 Year
  Sex: Male
  Weight: 72.58 kg

DRUGS (2)
  1. FINASTERIDE 5 MG [Suspect]
     Active Substance: FINASTERIDE
     Indication: ALOPECIA
     Route: 048
     Dates: start: 20150316, end: 20150425
  2. MEN^S EXTRA STRENGTH MINOXIDIL HAIR REGROWTH TREATMENT [Concomitant]

REACTIONS (1)
  - Alopecia [None]
